FAERS Safety Report 10252879 (Version 1)
Quarter: 2014Q2

REPORT INFORMATION
  Report Type: Spontaneous
  Country: US (occurrence: US)
  Receive Date: 20140623
  Receipt Date: 20140623
  Transmission Date: 20141212
  Serious: Yes (Hospitalization)
  Sender: FDA-Public Use
  Company Number: US-B.I. PHARMACEUTICALS,INC./RIDGEFIELD-2014-BI-27636BP

PATIENT
  Age: 69 Year
  Sex: Male
  Weight: 59 kg

DRUGS (12)
  1. SPIRIVA [Suspect]
     Indication: CHRONIC OBSTRUCTIVE PULMONARY DISEASE
     Dosage: 18 MCG
     Route: 055
     Dates: start: 201401
  2. SPIRIVA [Suspect]
     Dosage: 18 MCG
     Route: 048
     Dates: start: 201401
  3. COUMADIN [Suspect]
     Indication: THROMBOSIS
     Route: 048
     Dates: start: 201311, end: 20140122
  4. COUMADIN [Suspect]
     Route: 048
     Dates: start: 20140124
  5. FLOVENT HFA [Concomitant]
     Indication: CHRONIC OBSTRUCTIVE PULMONARY DISEASE
     Dosage: 640 MG
     Route: 055
     Dates: start: 201310
  6. VENTOLIN HFA [Concomitant]
     Indication: CHRONIC OBSTRUCTIVE PULMONARY DISEASE
     Dosage: 1 PUF
     Route: 055
     Dates: start: 201310
  7. ALBUTEROL SULFATE [Concomitant]
     Indication: CHRONIC OBSTRUCTIVE PULMONARY DISEASE
     Dosage: INHALATION AEROSOL
     Route: 055
     Dates: start: 201310
  8. IRON [Concomitant]
     Dosage: 28 MG
     Route: 048
  9. FLUTICASONE [Concomitant]
     Indication: NASAL CONGESTION
     Dosage: 50 MG
     Route: 045
  10. BETA CAROTENE [Concomitant]
     Indication: INTESTINAL RESECTION
     Dosage: 15 MG
     Route: 048
     Dates: start: 1994
  11. POTASSIUM GLUCONATE [Concomitant]
     Indication: MUSCLE SPASMS
     Dosage: 595 MG
     Route: 048
     Dates: start: 2009
  12. FOLIC ACID [Concomitant]
     Indication: INTESTINAL RESECTION
     Dosage: 400 MCG
     Route: 048
     Dates: start: 1994

REACTIONS (7)
  - Diverticulitis [Recovered/Resolved]
  - Lymphadenopathy [Not Recovered/Not Resolved]
  - Musculoskeletal stiffness [Not Recovered/Not Resolved]
  - Arthralgia [Not Recovered/Not Resolved]
  - Gastrointestinal haemorrhage [Unknown]
  - Hypercoagulation [Unknown]
  - Incorrect route of drug administration [Recovered/Resolved]
